FAERS Safety Report 22129525 (Version 1)
Quarter: 2023Q1

REPORT INFORMATION
  Report Type: Spontaneous
  Country: US (occurrence: None)
  Receive Date: 20230323
  Receipt Date: 20230323
  Transmission Date: 20230417
  Serious: Yes (Death, Other)
  Sender: FDA-Public Use
  Company Number: US-Unichem Pharmaceuticals (USA) Inc-UCM202303-000317

PATIENT
  Age: 70 Year
  Sex: Male

DRUGS (1)
  1. AMIODARONE HYDROCHLORIDE [Suspect]
     Active Substance: AMIODARONE HYDROCHLORIDE
     Indication: Atrial fibrillation

REACTIONS (5)
  - Acute respiratory distress syndrome [Unknown]
  - Toxicity to various agents [Fatal]
  - Pulmonary alveolar haemorrhage [Unknown]
  - Hypertransaminasaemia [Unknown]
  - Product use in unapproved indication [Unknown]
